FAERS Safety Report 17590750 (Version 1)
Quarter: 2020Q1

REPORT INFORMATION
  Report Type: Spontaneous
  Country: US (occurrence: US)
  Receive Date: 20200325
  Receipt Date: 20200325
  Transmission Date: 20200409
  Serious: Yes (Life-Threatening, Hospitalization)
  Sender: FDA-Public Use
  Company Number: None

PATIENT
  Age: 73 Year
  Sex: Male
  Weight: 189.5 kg

DRUGS (1)
  1. APIXABAN (APIXABAN 5MG TAB) [Suspect]
     Active Substance: APIXABAN
     Indication: ATRIAL FIBRILLATION
     Route: 048
     Dates: start: 20160205, end: 20171209

REACTIONS (4)
  - Mouth haemorrhage [None]
  - Blood creatinine increased [None]
  - Loss of consciousness [None]
  - Cardio-respiratory arrest [None]

NARRATIVE: CASE EVENT DATE: 20171212
